FAERS Safety Report 8608830-7 (Version None)
Quarter: 2012Q3

REPORT INFORMATION
  Report Type: 
  Country: None (occurrence: None)
  Receive Date: 20120821
  Receipt Date: 20120809
  Transmission Date: 20120928
  Serious: Yes (Other)
  Sender: FDA-Public Use
  Company Number: US-ROCHE-1099670

PATIENT

DRUGS (6)
  1. FLUOROURACIL [Concomitant]
     Indication: METASTASES TO LIVER
  2. BEVACIZUMAB [Suspect]
     Indication: METASTASES TO LIVER
  3. OXALIPLATIN [Suspect]
     Indication: COLORECTAL CANCER
  4. OXALIPLATIN [Suspect]
     Indication: METASTASES TO LIVER
  5. BEVACIZUMAB [Suspect]
     Indication: COLORECTAL CANCER
  6. FLUOROURACIL [Concomitant]
     Indication: COLORECTAL CANCER

REACTIONS (1)
  - AUTOIMMUNE THROMBOCYTOPENIA [None]
